FAERS Safety Report 10218011 (Version 1)
Quarter: 2014Q2

REPORT INFORMATION
  Report Type: Spontaneous
  Country: US (occurrence: US)
  Receive Date: 20140605
  Receipt Date: 20140605
  Transmission Date: 20141212
  Serious: No
  Sender: FDA-Public Use
  Company Number: US-BIOGENIDEC-2014BI046761

PATIENT
  Age: 35 Year
  Sex: Female

DRUGS (10)
  1. TECFIDERA [Suspect]
     Indication: MULTIPLE SCLEROSIS
     Route: 048
  2. ADDERALL [Concomitant]
  3. BUTALBITAL-APAP-CAFF-COD [Concomitant]
  4. CYMBALTA [Concomitant]
  5. FENTANYL [Concomitant]
  6. KLONOPIN [Concomitant]
  7. LYRICA [Concomitant]
  8. OXYBUTYNIN CHLORIDE [Concomitant]
  9. OXYCODONE HCI [Concomitant]
  10. ZANAFLEX [Concomitant]

REACTIONS (2)
  - Headache [Unknown]
  - Abdominal discomfort [Unknown]
